FAERS Safety Report 25499406 (Version 4)
Quarter: 2025Q4

REPORT INFORMATION
  Report Type: Report from Study
  Country: US (occurrence: US)
  Receive Date: 20250701
  Receipt Date: 20251221
  Transmission Date: 20260117
  Serious: Yes (Hospitalization, Other)
  Sender: PFIZER
  Company Number: US-PFIZER INC-PV202300173110

PATIENT
  Age: 66 Year
  Sex: Male
  Weight: 102.06 kg

DRUGS (5)
  1. LORBRENA [Suspect]
     Active Substance: LORLATINIB
     Indication: Lung neoplasm malignant
     Dosage: TAKE 1 TABLET (100 MG TOTAL) DAILY
     Route: 048
     Dates: start: 20230117
  2. LORBRENA [Suspect]
     Active Substance: LORLATINIB
     Dosage: 100 MG PILL ONCE A DAY
     Route: 048
  3. NITROSTAT [Concomitant]
     Active Substance: NITROGLYCERIN
     Dosage: 0.4 MG UNDER THE TONGUE, IF NOT RELIEF IN 5 MINUTES CALL 911 - MAY USE 2 MORE DOSES 5 MINUTES APART
     Route: 060
     Dates: start: 20230510
  4. TRAZODONE [Concomitant]
     Active Substance: TRAZODONE HYDROCHLORIDE
     Indication: Sleep disorder
     Dosage: UNK
  5. IRON [Concomitant]
     Active Substance: IRON
     Dosage: UNK

REACTIONS (3)
  - Pneumonia [Unknown]
  - Intestinal obstruction [Unknown]
  - Colostomy [Unknown]

NARRATIVE: CASE EVENT DATE: 20231101
